FAERS Safety Report 8820048 (Version 1)
Quarter: 2012Q4

REPORT INFORMATION
  Report Type: 
  Country: GR (occurrence: GR)
  Receive Date: 20121001
  Receipt Date: 20121001
  Transmission Date: 20130627
  Serious: Yes (Death)
  Sender: FDA-Public Use
  Company Number: GR-BAXTER-2012BAX017712

PATIENT
  Sex: Female
  Weight: 70 kg

DRUGS (3)
  1. OLICLINOMEL N7-1000, EMULSION FOR INFUSION [Suspect]
     Indication: PARENTERAL NUTRITION
     Dates: start: 20120803, end: 20120913
  2. CERNEVIT [Suspect]
     Indication: PARENTERAL NUTRITION
     Dosage: 1 VIAL
     Dates: start: 20120803, end: 20120913
  3. UNSPECIFIED INGREDIENT [Suspect]
     Indication: PARENTERAL NUTRITION
     Dates: start: 20120803, end: 20120913

REACTIONS (2)
  - Disease progression [Fatal]
  - Metastases to oesophagus [Unknown]
